FAERS Safety Report 8596239-4 (Version None)
Quarter: 2012Q3

REPORT INFORMATION
  Report Type: 
  Country: None (occurrence: None)
  Receive Date: 20120815
  Receipt Date: 20120809
  Transmission Date: 20120928
  Serious: Yes (Hospitalization, Congenital Anomaly)
  Sender: FDA-Public Use
  Company Number: PHEH2011US05253

PATIENT
  Sex: Male

DRUGS (7)
  1. SALINE [Concomitant]
  2. TOBI [Suspect]
     Indication: CYSTIC FIBROSIS
     Dosage: 300 MG, BID  28 DAYS ON AND 28 DAYS OFF
  3. VITAMIN TAB [Concomitant]
  4. PANCRELIPASE [Concomitant]
  5. PULMOZYME [Concomitant]
  6. CAYSTON [Concomitant]
  7. ALBUTEROL [Concomitant]

REACTIONS (6)
  - INFECTIVE PULMONARY EXACERBATION OF CYSTIC FIBROSIS [None]
  - INTESTINAL MALROTATION [None]
  - FUNGAL INFECTION [None]
  - BLOOD GLUCOSE INCREASED [None]
  - PULMONARY FUNCTION TEST DECREASED [None]
  - MALAISE [None]
